FAERS Safety Report 21980928 (Version 1)
Quarter: 2023Q1

REPORT INFORMATION
  Report Type: Report from Study
  Country: BR (occurrence: BR)
  Receive Date: 20230211
  Receipt Date: 20230211
  Transmission Date: 20230418
  Serious: Yes (Other)
  Sender: FDA-Public Use
  Company Number: BR-ABBVIE-4303543

PATIENT
  Age: 24 Year
  Sex: Female

DRUGS (1)
  1. RINVOQ [Suspect]
     Active Substance: UPADACITINIB
     Indication: Dermatitis atopic
     Dosage: 1 DAILY (AS REPORTED)
     Route: 048
     Dates: start: 202209, end: 202210

REACTIONS (6)
  - Systemic lupus erythematosus [Unknown]
  - Emphysema [Unknown]
  - Adenoidal disorder [Unknown]
  - Skin lesion [Unknown]
  - Migraine [Unknown]
  - Arthralgia [Unknown]

NARRATIVE: CASE EVENT DATE: 20221201
